FAERS Safety Report 9892160 (Version 1)
Quarter: 2014Q1

REPORT INFORMATION
  Report Type: Spontaneous
  Country: US (occurrence: US)
  Receive Date: 20140212
  Receipt Date: 20140212
  Transmission Date: 20141002
  Serious: No
  Sender: FDA-Public Use
  Company Number: US-TEVA-462569USA

PATIENT
  Age: 26 Year
  Sex: Female
  Weight: 54.48 kg

DRUGS (2)
  1. PLAN B ONE-STEP [Suspect]
     Indication: POST COITAL CONTRACEPTION
     Dosage: 1.5 MILLIGRAM DAILY;
     Route: 048
     Dates: start: 20140201, end: 20140201
  2. MULTIVITAMINS [Concomitant]
     Indication: ROUTINE HEALTH MAINTENANCE

REACTIONS (7)
  - Back pain [Not Recovered/Not Resolved]
  - Seborrhoea [Not Recovered/Not Resolved]
  - Abdominal distension [Not Recovered/Not Resolved]
  - Dysmenorrhoea [Not Recovered/Not Resolved]
  - Menstruation irregular [Unknown]
  - Nausea [Not Recovered/Not Resolved]
  - Vomiting [Unknown]
